FAERS Safety Report 8124318-4 (Version None)
Quarter: 2012Q1

REPORT INFORMATION
  Report Type: 
  Country: None (occurrence: None)
  Receive Date: 20120209
  Receipt Date: 20120131
  Transmission Date: 20120608
  Serious: Yes (Hospitalization)
  Sender: FDA-Public Use
  Company Number: US-BAYER-2011-073317

PATIENT
  Age: 31 Year
  Sex: Female
  Weight: 80.726 kg

DRUGS (13)
  1. DROSPIRENONE AND ETHINYL ESTRADIOL [Suspect]
     Dosage: UNK
     Route: 048
     Dates: start: 20090330, end: 20100109
  2. DETOX GEL [Concomitant]
     Dosage: UNK
     Dates: start: 20081125, end: 20110107
  3. LAMICTAL [Concomitant]
     Indication: DEPRESSION
     Dosage: UNK
     Route: 048
     Dates: start: 20091110, end: 20110629
  4. KLONOPIN [Concomitant]
     Indication: ANXIETY
     Dosage: 0.5 MG, HS
     Dates: start: 20090626, end: 20100409
  5. CLINDAMYCIN [Concomitant]
     Dosage: UNK
     Dates: start: 20091016
  6. FLUOXETINE [Concomitant]
     Indication: DEPRESSION
     Dosage: UNK
     Route: 048
     Dates: start: 20051120, end: 20110328
  7. Z-CAINE [Concomitant]
     Dosage: UNK
     Route: 061
     Dates: start: 20091103
  8. MULTI-VITAMIN [Concomitant]
     Dosage: UNK
     Dates: start: 20081120, end: 20100215
  9. ITRACONAZOLE [Concomitant]
     Dosage: 100 MG, BID
     Route: 048
     Dates: start: 20051017, end: 20100921
  10. VITAMIN D [Concomitant]
     Indication: DEPRESSION
     Dosage: UNK
     Route: 048
     Dates: start: 20081223, end: 20110119
  11. B5 GEL [Concomitant]
     Dosage: UNK
     Route: 061
     Dates: start: 20090124, end: 20091222
  12. YAZ [Suspect]
     Dosage: UNK
     Route: 048
     Dates: start: 20090330, end: 20100109
  13. FLONASE [Concomitant]
     Indication: SINUS CONGESTION
     Dosage: 50 MCG/24HR, PRN
     Dates: start: 20081120, end: 20091120

REACTIONS (8)
  - CHEST PAIN [None]
  - PULMONARY EMBOLISM [None]
  - PAIN IN EXTREMITY [None]
  - DYSPNOEA [None]
  - DEFORMITY [None]
  - INJURY [None]
  - ANXIETY [None]
  - PAIN [None]
